FAERS Safety Report 11501192 (Version 1)
Quarter: 2015Q3

REPORT INFORMATION
  Report Type: Spontaneous
  Country: US (occurrence: US)
  Receive Date: 20150903
  Receipt Date: 20150903
  Transmission Date: 20151125
  Serious: No
  Sender: FDA-Public Use
  Company Number: US-ELI_LILLY_AND_COMPANY-US200907005034

PATIENT
  Age: 8 Year
  Sex: Male

DRUGS (5)
  1. HYDROCORTISONE. [Concomitant]
     Active Substance: HYDROCORTISONE
     Dosage: 5 MG, 3/D
  2. LANTUS [Concomitant]
     Active Substance: INSULIN GLARGINE
     Dosage: 4.5 U, UNK
  3. HUMALOG [Suspect]
     Active Substance: INSULIN LISPRO
     Dates: start: 20090718
  4. HUMALOG [Suspect]
     Active Substance: INSULIN LISPRO
     Dosage: UNK, OTHER
  5. FLUDROCORTISONE [Concomitant]
     Active Substance: FLUDROCORTISONE
     Dosage: 0.1 MG, 2/D

REACTIONS (5)
  - Wrong technique in product usage process [Not Recovered/Not Resolved]
  - Underdose [Unknown]
  - Blood glucose increased [Recovered/Resolved]
  - Addison^s disease [Not Recovered/Not Resolved]
  - Incorrect dose administered [Recovered/Resolved]

NARRATIVE: CASE EVENT DATE: 200907
